FAERS Safety Report 25738966 (Version 1)
Quarter: 2025Q3

REPORT INFORMATION
  Report Type: Spontaneous
  Country: EU (occurrence: EU)
  Receive Date: 20250829
  Receipt Date: 20250829
  Transmission Date: 20251020
  Serious: Yes (Death, Other)
  Sender: AUROBINDO
  Company Number: EU-EMA-DD-20250729-7482707-082108

PATIENT
  Age: 33 Year
  Sex: Female

DRUGS (30)
  1. CARBOPLATIN [Suspect]
     Active Substance: CARBOPLATIN
     Indication: Malignant neoplasm progression
     Route: 065
  2. CARBOPLATIN [Suspect]
     Active Substance: CARBOPLATIN
     Indication: Invasive ductal breast carcinoma
     Route: 065
     Dates: start: 200912
  3. CARBOPLATIN [Suspect]
     Active Substance: CARBOPLATIN
     Indication: Metastases to skin
  4. CARBOPLATIN [Suspect]
     Active Substance: CARBOPLATIN
     Indication: Metastases to lung
  5. CARBOPLATIN [Suspect]
     Active Substance: CARBOPLATIN
     Indication: Metastases to bone
  6. CELECOXIB [Suspect]
     Active Substance: CELECOXIB
     Indication: Malignant neoplasm progression
     Dosage: 400 MILLIGRAM, ONCE A DAY (DAILY DOSE: 400 MG MILLIGRAM(S) EVERY DAY)
     Route: 065
  7. CELECOXIB [Suspect]
     Active Substance: CELECOXIB
     Indication: Invasive ductal breast carcinoma
     Dosage: 400 MILLIGRAM/KILOGRAM, ONCE A DAY (CYLE OF 400 MG, DAILY FOR 3 WEEKS)
     Route: 065
     Dates: start: 200902
  8. CELECOXIB [Suspect]
     Active Substance: CELECOXIB
     Indication: Metastases to bone
     Dosage: 400 MILLIGRAM, TWO TIMES A DAY (200 MG, 2X/DAY)
     Route: 065
  9. CELECOXIB [Suspect]
     Active Substance: CELECOXIB
     Indication: Metastases to lung
     Route: 065
     Dates: start: 200912
  10. CELECOXIB [Suspect]
     Active Substance: CELECOXIB
     Indication: Metastases to skin
     Route: 065
  11. PACLITAXEL [Suspect]
     Active Substance: PACLITAXEL
     Indication: Malignant neoplasm progression
     Route: 065
  12. PACLITAXEL [Suspect]
     Active Substance: PACLITAXEL
     Indication: Invasive ductal breast carcinoma
     Route: 065
     Dates: start: 200912
  13. PACLITAXEL [Suspect]
     Active Substance: PACLITAXEL
     Indication: Metastases to skin
  14. PACLITAXEL [Suspect]
     Active Substance: PACLITAXEL
     Indication: Metastases to lung
  15. PACLITAXEL [Suspect]
     Active Substance: PACLITAXEL
     Indication: Metastases to bone
  16. BEVACIZUMAB [Suspect]
     Active Substance: BEVACIZUMAB
     Indication: Malignant neoplasm progression
     Route: 065
  17. BEVACIZUMAB [Suspect]
     Active Substance: BEVACIZUMAB
     Indication: Invasive ductal breast carcinoma
     Route: 065
     Dates: start: 200902, end: 200910
  18. BEVACIZUMAB [Suspect]
     Active Substance: BEVACIZUMAB
     Indication: Metastases to lung
     Route: 065
  19. BEVACIZUMAB [Suspect]
     Active Substance: BEVACIZUMAB
     Indication: Metastases to bone
     Route: 065
     Dates: start: 200912
  20. BEVACIZUMAB [Suspect]
     Active Substance: BEVACIZUMAB
     Indication: Metastases to skin
     Route: 065
  21. CAPECITABINE [Suspect]
     Active Substance: CAPECITABINE
     Indication: Malignant neoplasm progression
     Dosage: 3000 MILLIGRAM, ONCE A DAY (DAILY DOSE: 3000 MG MILLIGRAM(S) EVERY DAY)
     Route: 065
  22. CAPECITABINE [Suspect]
     Active Substance: CAPECITABINE
     Indication: Invasive ductal breast carcinoma
     Dosage: 3000 MILLIGRAM, ONCE A DAY (~CYCLES OF 3000 MG, DAILY FOR 3 WEEKS)
     Route: 065
     Dates: start: 200902, end: 200910
  23. CAPECITABINE [Suspect]
     Active Substance: CAPECITABINE
     Indication: Metastases to bone
     Dosage: 1000 MILLIGRAM, ONCE A DAY (500 MG, 2X/DAY)
     Route: 065
  24. CAPECITABINE [Suspect]
     Active Substance: CAPECITABINE
     Indication: Metastases to skin
     Route: 065
  25. CAPECITABINE [Suspect]
     Active Substance: CAPECITABINE
     Indication: Metastases to lung
     Route: 065
  26. LAPATINIB [Suspect]
     Active Substance: LAPATINIB
     Indication: Malignant neoplasm progression
     Route: 065
  27. LAPATINIB [Suspect]
     Active Substance: LAPATINIB
     Indication: Invasive ductal breast carcinoma
     Dosage: 500 MILLIGRAM, ONCE A DAY (CYCLES OF 2 X 250 MG/DAY)
     Route: 065
  28. LAPATINIB [Suspect]
     Active Substance: LAPATINIB
     Indication: Metastases to bone
     Dosage: 2 DOSAGE FORM, ONCE A DAY
     Route: 065
  29. LAPATINIB [Suspect]
     Active Substance: LAPATINIB
     Indication: Metastases to lung
  30. LAPATINIB [Suspect]
     Active Substance: LAPATINIB
     Indication: Metastases to skin

REACTIONS (12)
  - Metastases to central nervous system [Fatal]
  - Metastatic malignant melanoma [Fatal]
  - Second primary malignancy [Fatal]
  - Product use in unapproved indication [Fatal]
  - Breast cancer metastatic [Unknown]
  - Malignant neoplasm progression [Unknown]
  - Gait inability [Unknown]
  - Therapeutic product effect incomplete [Unknown]
  - Nervous system disorder [Unknown]
  - Spinal stenosis [Unknown]
  - Disease progression [Unknown]
  - Therapeutic response decreased [Unknown]

NARRATIVE: CASE EVENT DATE: 20090101
